FAERS Safety Report 12173575 (Version 1)
Quarter: 2016Q1

REPORT INFORMATION
  Report Type: Spontaneous
  Country: US (occurrence: None)
  Receive Date: 20160311
  Receipt Date: 20160311
  Transmission Date: 20160526
  Serious: No
  Sender: FDA-Public Use
  Company Number: None

PATIENT
  Age: 79 Year
  Sex: Female
  Weight: 67.59 kg

DRUGS (1)
  1. CIPROFLOXACIN 400 MG CLARIS LIFESCIENCES [Suspect]
     Active Substance: CIPROFLOXACIN
     Indication: INFECTION
     Route: 042

REACTIONS (3)
  - Injection site erythema [None]
  - Injection site pruritus [None]
  - Injection site streaking [None]

NARRATIVE: CASE EVENT DATE: 20160307
